FAERS Safety Report 9231323 (Version 2)
Quarter: 2013Q2

REPORT INFORMATION
  Report Type: Spontaneous
  Country: FR (occurrence: FR)
  Receive Date: 20130415
  Receipt Date: 20130415
  Transmission Date: 20140414
  Serious: Yes (Other)
  Sender: FDA-Public Use
  Company Number: FR-TEVA-333774ISR

PATIENT
  Age: 52 Year
  Sex: Female
  Weight: 77 kg

DRUGS (4)
  1. LAMOTRIGINE TEVA [Suspect]
     Dosage: 25 MILLIGRAM DAILY;
     Route: 048
     Dates: start: 20120324, end: 201204
  2. PROGESTERONE BIOGARAN [Concomitant]
     Route: 048
  3. LYSANXIA [Concomitant]
  4. ANTIHISTAMINES (BRAND NAME NOT SPECIFIED) [Concomitant]

REACTIONS (4)
  - Mucosal inflammation [Recovered/Resolved]
  - Rash erythematous [Recovered/Resolved]
  - Rash [Recovered/Resolved]
  - Headache [Recovered/Resolved]
